FAERS Safety Report 23551453 (Version 1)
Quarter: 2024Q1

REPORT INFORMATION
  Report Type: Spontaneous
  Country: ES (occurrence: ES)
  Receive Date: 20240222
  Receipt Date: 20240222
  Transmission Date: 20240409
  Serious: Yes (Other)
  Sender: FDA-Public Use
  Company Number: ES-002147023-NVSC2024ES034031

PATIENT
  Age: 53 Year
  Sex: Male

DRUGS (1)
  1. VOTRIENT [Suspect]
     Active Substance: PAZOPANIB HYDROCHLORIDE
     Indication: Product used for unknown indication
     Dosage: 2 DOSAGE FORM, QD
     Route: 065

REACTIONS (8)
  - Confusional state [Unknown]
  - Dysphonia [Unknown]
  - Incontinence [Unknown]
  - Obsessive-compulsive disorder [Unknown]
  - Feeling abnormal [Unknown]
  - Motor dysfunction [Unknown]
  - Gait disturbance [Unknown]
  - Grip strength decreased [Unknown]
